FAERS Safety Report 17688673 (Version 1)
Quarter: 2020Q2

REPORT INFORMATION
  Report Type: Spontaneous
  Country: US (occurrence: US)
  Receive Date: 20200421
  Receipt Date: 20200421
  Transmission Date: 20200714
  Serious: No
  Sender: FDA-Public Use
  Company Number: None

PATIENT
  Age: 45 Year
  Sex: Female
  Weight: 92.25 kg

DRUGS (12)
  1. AIMOVIG [Suspect]
     Active Substance: ERENUMAB-AOOE
     Indication: MIGRAINE
     Dosage: ?          OTHER FREQUENCY:MONTHLY;OTHER ROUTE:INJECTION?
     Dates: start: 20190501
  2. IMITREX [Concomitant]
     Active Substance: SUMATRIPTAN SUCCINATE
  3. AMBIEN [Concomitant]
     Active Substance: ZOLPIDEM TARTRATE
  4. OMEPRAZOLE. [Concomitant]
     Active Substance: OMEPRAZOLE
  5. TRAMADOL. [Concomitant]
     Active Substance: TRAMADOL
  6. MAGNESIUM [Concomitant]
     Active Substance: MAGNESIUM
  7. FISH OIL [Concomitant]
     Active Substance: FISH OIL
  8. HUMIRA [Concomitant]
     Active Substance: ADALIMUMAB
  9. MULTIVITAMIN [Concomitant]
     Active Substance: VITAMINS
  10. LORAZEPAM. [Concomitant]
     Active Substance: LORAZEPAM
  11. AIMOVIG [Concomitant]
     Active Substance: ERENUMAB-AOOE
  12. LOSARTAN. [Concomitant]
     Active Substance: LOSARTAN

REACTIONS (6)
  - Loss of employment [None]
  - Arthralgia [None]
  - Myalgia [None]
  - Therapy partial responder [None]
  - Ankylosing spondylitis [None]
  - Migraine [None]

NARRATIVE: CASE EVENT DATE: 20190601
